FAERS Safety Report 25269329 (Version 2)
Quarter: 2025Q3

REPORT INFORMATION
  Report Type: Spontaneous
  Country: US (occurrence: US)
  Receive Date: 20250505
  Receipt Date: 20250701
  Transmission Date: 20251021
  Serious: No
  Sender: INSUD PHARMA
  Company Number: US-INSUD PHARMA-2504US03174

PATIENT

DRUGS (4)
  1. SLYND [Suspect]
     Active Substance: DROSPIRENONE
     Indication: Contraception
     Dosage: 4 MILLIGRAM, QD
     Route: 048
     Dates: start: 202503
  2. SLYND [Suspect]
     Active Substance: DROSPIRENONE
     Indication: Endometriosis
     Dosage: 4 MILLIGRAM, QD
     Route: 048
     Dates: start: 202207
  3. LEVOTHYROXINE [Concomitant]
     Active Substance: LEVOTHYROXINE
     Indication: Hypothyroidism
     Dosage: 50 MICROGRAM, QD
     Route: 065
  4. LIOTHYRONINE [Concomitant]
     Active Substance: LIOTHYRONINE
     Indication: Hypothyroidism
     Dosage: 5 MICROGRAM, QD
     Route: 065

REACTIONS (6)
  - Breast mass [Unknown]
  - Breast pain [Not Recovered/Not Resolved]
  - Breast tenderness [Not Recovered/Not Resolved]
  - Weight increased [Not Recovered/Not Resolved]
  - Drug ineffective for unapproved indication [Unknown]
  - Drug effective for unapproved indication [Unknown]

NARRATIVE: CASE EVENT DATE: 20220701
